FAERS Safety Report 25807838 (Version 1)
Quarter: 2025Q3

REPORT INFORMATION
  Report Type: Report from Study
  Country: US (occurrence: US)
  Receive Date: 20250916
  Receipt Date: 20250916
  Transmission Date: 20251021
  Serious: Yes (Other)
  Sender: ALNYLAM PHARMACEUTICALS
  Company Number: US-ALNYLAM PHARMACEUTICALS, INC.-ALN-2025-005574

PATIENT

DRUGS (1)
  1. AMVUTTRA [Suspect]
     Active Substance: VUTRISIRAN
     Indication: Cardiac amyloidosis
     Dosage: 25 MILLIGRAM, Q3M
     Route: 058
     Dates: start: 20250904, end: 20250904

REACTIONS (7)
  - Arrhythmia [Unknown]
  - Paraesthesia [Recovered/Resolved]
  - Head discomfort [Recovered/Resolved]
  - Ear discomfort [Recovered/Resolved]
  - Oedema [Unknown]
  - Dyspnoea exertional [Unknown]
  - Pain in extremity [Unknown]
